FAERS Safety Report 23767895 (Version 1)
Quarter: 2024Q2

REPORT INFORMATION
  Report Type: Spontaneous
  Country: CN (occurrence: CN)
  Receive Date: 20240422
  Receipt Date: 20240422
  Transmission Date: 20240716
  Serious: Yes (Hospitalization)
  Sender: FDA-Public Use
  Company Number: CN-MYLANLABS-2024M1035397

PATIENT
  Age: 53 Year
  Sex: Male

DRUGS (22)
  1. METFORMIN [Suspect]
     Active Substance: METFORMIN HYDROCHLORIDE
     Indication: Diabetes mellitus
     Dosage: UNK
     Route: 065
  2. METHOTREXATE [Suspect]
     Active Substance: METHOTREXATE
     Indication: Ankylosing spondylitis
     Dosage: UNK
     Route: 065
  3. MONASCUS PURPUREUS [Suspect]
     Active Substance: RED YEAST
     Indication: Hyperlipidaemia
     Dosage: UNK
     Route: 065
  4. CLINDAMYCIN PHOSPHATE [Suspect]
     Active Substance: CLINDAMYCIN PHOSPHATE
     Indication: Decubitus ulcer
     Dosage: 1.8 GRAM
     Route: 042
     Dates: start: 2018, end: 2018
  5. CLINDAMYCIN PHOSPHATE [Suspect]
     Active Substance: CLINDAMYCIN PHOSPHATE
     Indication: Infection
  6. AMOBARBITAL [Suspect]
     Active Substance: AMOBARBITAL
     Indication: Pyrexia
     Dosage: 2 MILLILITER
     Route: 030
     Dates: start: 2018
  7. SODIUM CHLORIDE [Concomitant]
     Active Substance: SODIUM CHLORIDE
     Indication: Dehydration
     Dosage: 1500 MILLILITER
     Route: 042
     Dates: start: 2018
  8. SODIUM CHLORIDE [Concomitant]
     Active Substance: SODIUM CHLORIDE
     Dosage: UNK UNK, BID
     Route: 042
     Dates: start: 2018
  9. VITAMINS [Concomitant]
     Active Substance: VITAMINS
     Indication: Vitamin supplementation
     Dosage: 2 VIALS
     Route: 042
     Dates: start: 2018
  10. ALANYL GLUTAMINE [Concomitant]
     Active Substance: ALANYL GLUTAMINE
     Indication: Product used for unknown indication
     Dosage: 20 GRAM,2 VIALS
     Route: 042
     Dates: start: 2018
  11. DEXTROSE [Concomitant]
     Active Substance: DEXTROSE\DEXTROSE MONOHYDRATE
     Indication: Product used for unknown indication
     Dosage: 500 MILLILITER,500 MILLILITER
     Route: 042
     Dates: start: 2018
  12. INSULIN NOS [Concomitant]
     Active Substance: INSULIN NOS
     Indication: Diabetes mellitus
     Dosage: UNKDOSE : 8 UNIT
     Route: 065
     Dates: start: 2018
  13. POTASSIUM CHLORIDE [Concomitant]
     Active Substance: POTASSIUM CHLORIDE
     Indication: Product used for unknown indication
     Dosage: 1 GRAM
     Route: 042
     Dates: start: 2018
  14. DOPAMINE HYDROCHLORIDE [Concomitant]
     Active Substance: DOPAMINE HYDROCHLORIDE
     Indication: Prophylaxis
     Dosage: 40 MILLIGRAM
     Route: 065
     Dates: start: 2018
  15. CEFOPERAZONE [Concomitant]
     Active Substance: CEFOPERAZONE
     Indication: Decubitus ulcer
     Dosage: UNK
     Route: 065
     Dates: start: 2018
  16. CEFOPERAZONE [Concomitant]
     Active Substance: CEFOPERAZONE
     Indication: Infection
  17. SULBACTAM SODIUM [Concomitant]
     Active Substance: SULBACTAM SODIUM
     Indication: Decubitus ulcer
     Dosage: 3 GRAM, BID
     Route: 042
     Dates: start: 2018
  18. SULBACTAM SODIUM [Concomitant]
     Active Substance: SULBACTAM SODIUM
     Indication: Infection
  19. METRONIDAZOLE [Concomitant]
     Active Substance: METRONIDAZOLE
     Indication: Decubitus ulcer
     Dosage: 500 MILLIGRAM
     Route: 065
     Dates: start: 2018
  20. METRONIDAZOLE [Concomitant]
     Active Substance: METRONIDAZOLE
     Indication: Infection
  21. INSULIN ASPART [Concomitant]
     Active Substance: INSULIN ASPART
     Indication: Diabetes mellitus
     Dosage: UNK, DOSE : BASAL DOSE OF 12 U: 4 U BEFORE BREAKFAST, LUNCH, AND DINNER, ADMINISTERED BEFORE EACH ME
     Route: 065
     Dates: start: 2018
  22. INSULIN GLARGINE [Concomitant]
     Active Substance: INSULIN GLARGINE
     Indication: Diabetes mellitus
     Dosage: UNK,DOSE: 6U
     Route: 058
     Dates: start: 2018

REACTIONS (2)
  - Drug ineffective [Unknown]
  - Intentional product misuse [Unknown]

NARRATIVE: CASE EVENT DATE: 20180101
